FAERS Safety Report 7316220-2 (Version None)
Quarter: 2011Q1

REPORT INFORMATION
  Report Type: 
  Country: None (occurrence: None)
  Receive Date: 20110225
  Receipt Date: 20110217
  Transmission Date: 20110831
  Serious: No
  Sender: FDA-Public Use
  Company Number: BR-ROCHE-760377

PATIENT
  Sex: Male
  Weight: 2.7 kg

DRUGS (1)
  1. ROACUTAN [Suspect]
     Indication: ACNE
     Route: 064
     Dates: start: 20071112, end: 20080915

REACTIONS (2)
  - NORMAL NEWBORN [None]
  - NO ADVERSE EVENT [None]
